FAERS Safety Report 25081611 (Version 1)
Quarter: 2025Q1

REPORT INFORMATION
  Report Type: Spontaneous
  Country: US (occurrence: US)
  Receive Date: 20250316
  Receipt Date: 20250316
  Transmission Date: 20250408
  Serious: No
  Sender: AMGEN
  Company Number: US-AMGEN-USASP2025047467

PATIENT
  Age: 62 Year
  Sex: Female

DRUGS (1)
  1. REPATHA [Suspect]
     Active Substance: EVOLOCUMAB
     Indication: Product used for unknown indication
     Dosage: 140 MILLIGRAM, Q2WK
     Route: 058
     Dates: start: 202502

REACTIONS (6)
  - Injection site pain [Unknown]
  - Headache [Unknown]
  - Dyskinesia [Unknown]
  - Incorrect dose administered by device [Unknown]
  - Device use error [Unknown]
  - Accidental exposure to product [Unknown]

NARRATIVE: CASE EVENT DATE: 20250307
